FAERS Safety Report 8468867-8 (Version None)
Quarter: 2012Q2

REPORT INFORMATION
  Report Type: 
  Country: None (occurrence: None)
  Receive Date: 20120620
  Receipt Date: 20120608
  Transmission Date: 20120825
  Serious: Yes (Other)
  Sender: FDA-Public Use
  Company Number: 2012P1040365

PATIENT
  Age: 27 Year
  Sex: Male
  Weight: 40.8237 kg

DRUGS (9)
  1. CLORAZEPATEIC [Concomitant]
  2. GLUCOSAMINE SULFATE [Concomitant]
  3. ASCORBIC ACID [Concomitant]
  4. ASPIRIN [Concomitant]
  5. BENADRYL [Concomitant]
  6. CARBAMAZEPINE [Suspect]
     Indication: CONVULSION
     Dosage: 400 MG;BID, 300 MG;QD;
  7. VALIIJM [Concomitant]
  8. ATIVAN [Concomitant]
  9. MOTRIN [Concomitant]

REACTIONS (1)
  - CONVULSION [None]
